FAERS Safety Report 9792213 (Version 1)
Quarter: 2013Q4

REPORT INFORMATION
  Report Type: Spontaneous
  Country: US (occurrence: None)
  Receive Date: 20131231
  Receipt Date: 20131231
  Transmission Date: 20140711
  Serious: Yes (Other)
  Sender: FDA-Public Use
  Company Number: None

PATIENT
  Age: 39 Year
  Sex: Male
  Weight: 94.8 kg

DRUGS (7)
  1. VECTICAL [Suspect]
     Indication: PSORIASIS
     Route: 061
  2. MULTI-VITAMIN SUPPLEMENT [Concomitant]
  3. VITAMIN C [Concomitant]
  4. OMEGA 3 FISH OIL [Concomitant]
  5. ACETAMINOPHEN [Concomitant]
  6. NAPROXEN [Concomitant]
  7. IBUPROFEN [Concomitant]

REACTIONS (3)
  - Testicular pain [None]
  - Skin irritation [None]
  - Dermatitis [None]
